FAERS Safety Report 5739911-3 (Version None)
Quarter: 2008Q2

REPORT INFORMATION
  Report Type: 
  Country: None (occurrence: None)
  Receive Date: 20080516
  Receipt Date: 20080512
  Transmission Date: 20081010
  Serious: Yes (Other)
  Sender: FDA-Public Use
  Company Number: US-BAYER-200813586NA

PATIENT
  Age: 43 Year
  Sex: Female
  Weight: 68 kg

DRUGS (1)
  1. MIRENA [Suspect]
     Indication: CONTRACEPTION
     Route: 015
     Dates: start: 20050101

REACTIONS (5)
  - BREAST CANCER FEMALE [None]
  - BREAST PAIN [None]
  - BREAST TENDERNESS [None]
  - COMPLICATION OF DEVICE INSERTION [None]
  - VAGINAL HAEMORRHAGE [None]
